FAERS Safety Report 16095604 (Version 1)
Quarter: 2019Q1

REPORT INFORMATION
  Report Type: Other
  Country: US (occurrence: US)
  Receive Date: 20190320
  Receipt Date: 20190320
  Transmission Date: 20190418
  Serious: Yes (Other)
  Sender: FDA-Public Use
  Company Number: US-EMD SERONO-9078097

PATIENT
  Age: 16 Year
  Sex: Male

DRUGS (2)
  1. CHORIOGONADOTROPIN ALFA [Suspect]
     Active Substance: CHORIOGONADOTROPIN ALFA
     Indication: OVULATION INDUCTION
     Dosage: LOW DOSE
  2. FOLLITROPIN ALFA [Suspect]
     Active Substance: FOLLITROPIN
     Indication: OVULATION INDUCTION

REACTIONS (5)
  - Depressed mood [Unknown]
  - Breast enlargement [Recovering/Resolving]
  - Vaginal haemorrhage [Unknown]
  - Off label use [Unknown]
  - Suicidal ideation [Unknown]
